FAERS Safety Report 12118887 (Version 1)
Quarter: 2016Q1

REPORT INFORMATION
  Report Type: Report from Study
  Country: US (occurrence: US)
  Receive Date: 20160226
  Receipt Date: 20160226
  Transmission Date: 20160526
  Serious: Yes (Death, Hospitalization, Other)
  Sender: FDA-Public Use
  Company Number: US-AMGEN-USASL2016021896

PATIENT
  Age: 74 Year
  Sex: Male

DRUGS (2)
  1. PROLIA [Suspect]
     Active Substance: DENOSUMAB
     Indication: PROSTATE CANCER
     Dosage: UNK
     Route: 065
     Dates: start: 201503
  2. PROLIA [Suspect]
     Active Substance: DENOSUMAB
     Indication: BONE LOSS

REACTIONS (14)
  - Pneumonia [Unknown]
  - Cardiac disorder [Unknown]
  - Influenza like illness [Unknown]
  - Oedema [Unknown]
  - Blood pressure abnormal [Unknown]
  - Pain [Unknown]
  - Pyrexia [Unknown]
  - Syncope [Unknown]
  - Fall [Unknown]
  - Blood calcium abnormal [Unknown]
  - Nausea [Unknown]
  - Neoplasm malignant [Fatal]
  - Balance disorder [Unknown]
  - Blood electrolytes abnormal [Unknown]

NARRATIVE: CASE EVENT DATE: 2015
